FAERS Safety Report 8303532-9 (Version None)
Quarter: 2012Q2

REPORT INFORMATION
  Report Type: 
  Country: None (occurrence: None)
  Receive Date: 20120423
  Receipt Date: 20120419
  Transmission Date: 20120825
  Serious: Yes (Other)
  Sender: FDA-Public Use
  Company Number: US-PFIZER INC-2012097805

PATIENT
  Sex: Female
  Weight: 76.19 kg

DRUGS (5)
  1. CHANTIX [Suspect]
     Indication: SMOKING CESSATION THERAPY
     Dosage: 0.5 MG, DAILY
     Dates: start: 20110101, end: 20110101
  2. CHANTIX [Suspect]
     Dosage: UNK
  3. CHANTIX [Suspect]
     Dosage: 0.5 MG, 2X/DAY
     Dates: start: 20110101, end: 20110101
  4. HYDROCODONE [Concomitant]
     Indication: PERIPHERAL NERVE INJURY
     Dosage: 7.5 MG, TWO OR THREE TIMES A DAY
  5. CELEXA [Concomitant]
     Indication: DEPRESSION
     Dosage: UNK

REACTIONS (5)
  - HEADACHE [None]
  - BLOOD PRESSURE INCREASED [None]
  - ABNORMAL DREAMS [None]
  - MYOCARDIAL INFARCTION [None]
  - EMPHYSEMA [None]
